FAERS Safety Report 12085372 (Version 3)
Quarter: 2016Q1

REPORT INFORMATION
  Report Type: Report from Study
  Country: US (occurrence: US)
  Receive Date: 20160217
  Receipt Date: 20160311
  Transmission Date: 20160526
  Serious: Yes (Hospitalization)
  Sender: FDA-Public Use
  Company Number: US-EISAI MEDICAL RESEARCH-EC-2016-014261

PATIENT
  Age: 68 Year
  Sex: Female

DRUGS (1)
  1. LENVIMA [Suspect]
     Active Substance: LENVATINIB
     Indication: THYROID CANCER
     Route: 048
     Dates: start: 20160129, end: 20160202

REACTIONS (6)
  - Neoplasm [Unknown]
  - Hypertension [Not Recovered/Not Resolved]
  - Back pain [Recovered/Resolved]
  - Chest pain [Unknown]
  - Urinary tract infection [Recovered/Resolved]
  - Pain in extremity [Recovered/Resolved]

NARRATIVE: CASE EVENT DATE: 201602
